FAERS Safety Report 16188835 (Version 1)
Quarter: 2019Q2

REPORT INFORMATION
  Report Type: Spontaneous
  Country: US (occurrence: US)
  Receive Date: 20190412
  Receipt Date: 20190412
  Transmission Date: 20190711
  Serious: Yes (Other)
  Sender: FDA-Public Use
  Company Number: US-HQ SPECIALTY-US-2019INT000102

PATIENT

DRUGS (2)
  1. CARBOPLATIN. [Suspect]
     Active Substance: CARBOPLATIN
     Indication: UTERINE CANCER
     Dosage: UNK
     Dates: start: 201809
  2. TAXOL [Suspect]
     Active Substance: PACLITAXEL
     Indication: UTERINE CANCER
     Dosage: UNK
     Route: 065
     Dates: start: 201809

REACTIONS (6)
  - Retinal pigment epitheliopathy [Unknown]
  - Retinal detachment [Unknown]
  - Blindness [Unknown]
  - Choroidal sclerosis [Unknown]
  - Deposit eye [Unknown]
  - Visual impairment [Unknown]
